FAERS Safety Report 24217644 (Version 1)
Quarter: 2024Q3

REPORT INFORMATION
  Report Type: Spontaneous
  Country: CN (occurrence: CN)
  Receive Date: 20240816
  Receipt Date: 20240816
  Transmission Date: 20241016
  Serious: Yes (Other)
  Sender: BAYER
  Company Number: CN-BAYER-2024A118047

PATIENT
  Age: 60 Year
  Sex: Male
  Weight: 53 kg

DRUGS (1)
  1. ULTRAVIST [Suspect]
     Active Substance: IOPROMIDE
     Indication: Angiocardiogram
     Dosage: 80 ML, ONCE
     Route: 042
     Dates: start: 20240811, end: 20240811

REACTIONS (3)
  - Seizure [Recovered/Resolved]
  - Respiratory rate increased [None]
  - Blood pressure systolic increased [None]

NARRATIVE: CASE EVENT DATE: 20240811
